FAERS Safety Report 16837922 (Version 1)
Quarter: 2019Q3

REPORT INFORMATION
  Report Type: Spontaneous
  Country: US (occurrence: US)
  Receive Date: 20190923
  Receipt Date: 20190923
  Transmission Date: 20191005
  Serious: Yes (Other)
  Sender: FDA-Public Use
  Company Number: US-JNJFOC-20190730911

PATIENT
  Age: 12 Year
  Sex: Female

DRUGS (1)
  1. AVEENO POSITIVELY MINERAL SENSITIVE SKIN SUNSCREEN FOR FACE BROAD SPECTRUM SPF 50 [Suspect]
     Active Substance: ZINC OXIDE
     Indication: PRODUCT USED FOR UNKNOWN INDICATION
     Dosage: ON HER FACE AND WHOLE BODY
     Route: 061
     Dates: start: 201907, end: 201907

REACTIONS (1)
  - Sunburn [Recovered/Resolved]

NARRATIVE: CASE EVENT DATE: 201907
